FAERS Safety Report 18446731 (Version 2)
Quarter: 2021Q1

REPORT INFORMATION
  Report Type: Spontaneous
  Country: US (occurrence: US)
  Receive Date: 20201030
  Receipt Date: 20210113
  Transmission Date: 20210419
  Serious: Yes (Other)
  Sender: FDA-Public Use
  Company Number: US-BAUSCH-BL-2020-031374

PATIENT
  Age: 81 Year
  Sex: Female
  Weight: 59.02 kg

DRUGS (8)
  1. VITAMIN D [Concomitant]
     Active Substance: VITAMIN D NOS
     Indication: PRODUCT USED FOR UNKNOWN INDICATION
     Route: 048
  2. PLENVU [Suspect]
     Active Substance: ASCORBIC ACID\POLYETHYLENE GLYCOL 3350\POTASSIUM CHLORIDE\SODIUM ASCORBATE\SODIUM CHLORIDE\SODIUM SULFATE
     Indication: BOWEL PREPARATION
     Dosage: FIRST AND SECOND DOSE (AS DIRECTED)
     Route: 048
     Dates: start: 20201020, end: 20201021
  3. CALTRATE WITH D [Concomitant]
     Indication: PRODUCT USED FOR UNKNOWN INDICATION
     Route: 048
  4. LIDOCAINE. [Suspect]
     Active Substance: LIDOCAINE
     Indication: ANAESTHESIA PROCEDURE
  5. ADVIL [Concomitant]
     Active Substance: IBUPROFEN
     Indication: PRODUCT USED FOR UNKNOWN INDICATION
     Dosage: AS NEEDED
     Route: 048
     Dates: end: 20201018
  6. PROPOFOL. [Suspect]
     Active Substance: PROPOFOL
     Indication: ANAESTHESIA PROCEDURE
  7. LIDOCAINE. [Suspect]
     Active Substance: LIDOCAINE
     Indication: COLONOSCOPY
     Route: 065
     Dates: start: 20201021, end: 20201021
  8. PROPOFOL. [Suspect]
     Active Substance: PROPOFOL
     Indication: COLONOSCOPY
     Route: 065
     Dates: start: 20201021, end: 20201021

REACTIONS (12)
  - Urticaria [Recovering/Resolving]
  - Hypertension [Unknown]
  - Diarrhoea [Unknown]
  - Insomnia [Unknown]
  - Abdominal discomfort [Unknown]
  - Tremor [Unknown]
  - Fatigue [Unknown]
  - Petit mal epilepsy [Unknown]
  - Vomiting [Unknown]
  - Product taste abnormal [Unknown]
  - Loss of consciousness [Unknown]
  - Pruritus [Recovering/Resolving]

NARRATIVE: CASE EVENT DATE: 20201020
